FAERS Safety Report 16982371 (Version 2)
Quarter: 2020Q1

REPORT INFORMATION
  Report Type: Spontaneous
  Country: US (occurrence: US)
  Receive Date: 20191101
  Receipt Date: 20200303
  Transmission Date: 20200409
  Serious: Yes (Hospitalization, Other)
  Sender: FDA-Public Use
  Company Number: US-ASTRAZENECA-2019SF53139

PATIENT
  Age: 67 Year
  Sex: Male
  Weight: 95.3 kg

DRUGS (36)
  1. NEXIUM [Suspect]
     Active Substance: ESOMEPRAZOLE MAGNESIUM
     Indication: GASTROOESOPHAGEAL REFLUX DISEASE
     Route: 048
     Dates: start: 201606, end: 201701
  2. NEXIUM [Suspect]
     Active Substance: ESOMEPRAZOLE MAGNESIUM
     Indication: GASTROOESOPHAGEAL REFLUX DISEASE
     Dosage: GENERIC
     Route: 048
     Dates: start: 201504, end: 201601
  3. TIMOLOL. [Concomitant]
     Active Substance: TIMOLOL
     Indication: GLAUCOMA
     Route: 065
     Dates: start: 2004
  4. HYDRALAZINE [Concomitant]
     Active Substance: HYDRALAZINE HYDROCHLORIDE
     Indication: BLOOD PRESSURE ABNORMAL
     Route: 065
     Dates: start: 2015, end: 2016
  5. NEXIUM [Suspect]
     Active Substance: ESOMEPRAZOLE MAGNESIUM
     Indication: ULCER
     Route: 048
     Dates: start: 2015, end: 2016
  6. NEXIUM [Suspect]
     Active Substance: ESOMEPRAZOLE MAGNESIUM
     Indication: GASTROOESOPHAGEAL REFLUX DISEASE
     Route: 048
     Dates: start: 201502, end: 201503
  7. NEXIUM [Suspect]
     Active Substance: ESOMEPRAZOLE MAGNESIUM
     Indication: ULCER
     Route: 048
     Dates: start: 201502, end: 201503
  8. NEXIUM [Suspect]
     Active Substance: ESOMEPRAZOLE MAGNESIUM
     Indication: ULCER
     Dosage: GENERIC
     Route: 048
     Dates: start: 201503, end: 201504
  9. VITAMIN D [Concomitant]
     Active Substance: VITAMIN D NOS
     Indication: ROUTINE HEALTH MAINTENANCE
     Route: 065
     Dates: start: 2014
  10. VITAMIN E [Concomitant]
     Active Substance: .ALPHA.-TOCOPHEROL
     Indication: ROUTINE HEALTH MAINTENANCE
     Route: 065
     Dates: start: 2014
  11. XALATAN [Concomitant]
     Active Substance: LATANOPROST
     Indication: GLAUCOMA
     Route: 065
     Dates: start: 2007, end: 2009
  12. HYDROCODONE [Concomitant]
     Active Substance: HYDROCODONE
     Indication: PAIN
     Route: 065
     Dates: start: 2009
  13. NEXIUM [Suspect]
     Active Substance: ESOMEPRAZOLE MAGNESIUM
     Indication: GASTROOESOPHAGEAL REFLUX DISEASE
     Route: 048
     Dates: start: 2015, end: 2016
  14. NEXIUM [Suspect]
     Active Substance: ESOMEPRAZOLE MAGNESIUM
     Indication: ULCER
     Dosage: GENERIC
     Route: 048
     Dates: start: 201701, end: 201705
  15. LABETALOL [Concomitant]
     Active Substance: LABETALOL\LABETALOL HYDROCHLORIDE
     Indication: BLOOD PRESSURE ABNORMAL
     Route: 065
     Dates: start: 2016, end: 2017
  16. PREDNISONE. [Concomitant]
     Active Substance: PREDNISONE
     Route: 065
  17. NEXIUM [Suspect]
     Active Substance: ESOMEPRAZOLE MAGNESIUM
     Indication: GASTROOESOPHAGEAL REFLUX DISEASE
     Dosage: GENERIC
     Route: 048
     Dates: start: 201701, end: 201705
  18. NEXIUM [Suspect]
     Active Substance: ESOMEPRAZOLE MAGNESIUM
     Indication: GASTROOESOPHAGEAL REFLUX DISEASE
     Dosage: GENERIC
     Route: 048
     Dates: start: 201503, end: 201504
  19. NEXIUM [Suspect]
     Active Substance: ESOMEPRAZOLE MAGNESIUM
     Indication: ULCER
     Dosage: GENERIC
     Route: 048
     Dates: start: 201504, end: 201601
  20. NEXIUM [Suspect]
     Active Substance: ESOMEPRAZOLE MAGNESIUM
     Indication: GASTROOESOPHAGEAL REFLUX DISEASE
     Route: 048
     Dates: start: 20141210
  21. NEXIUM [Suspect]
     Active Substance: ESOMEPRAZOLE MAGNESIUM
     Indication: GASTROOESOPHAGEAL REFLUX DISEASE
     Dosage: GENERIC
     Route: 048
     Dates: start: 20170426
  22. PANTOPRAZOLE [Suspect]
     Active Substance: PANTOPRAZOLE
     Indication: ULCER
     Route: 065
     Dates: start: 201412, end: 201503
  23. PANTOPRAZOLE SODIUM. [Concomitant]
     Active Substance: PANTOPRAZOLE SODIUM
     Route: 048
     Dates: start: 20150204
  24. CEPHALEXIN. [Concomitant]
     Active Substance: CEPHALEXIN
     Route: 065
  25. PENICILLIN [Concomitant]
     Active Substance: PENICILLIN
     Route: 065
  26. DOXAZOSIN [Concomitant]
     Active Substance: DOXAZOSIN MESYLATE
     Route: 065
  27. CIPROFLOXACIN. [Concomitant]
     Active Substance: CIPROFLOXACIN
     Route: 065
  28. NEXIUM [Suspect]
     Active Substance: ESOMEPRAZOLE MAGNESIUM
     Indication: ULCER
     Route: 048
     Dates: start: 20141210
  29. NEXIUM [Suspect]
     Active Substance: ESOMEPRAZOLE MAGNESIUM
     Indication: ULCER
     Dosage: GENERIC
     Route: 048
     Dates: start: 20170426
  30. AMLODIPINE [Concomitant]
     Active Substance: AMLODIPINE BESYLATE
     Indication: BLOOD PRESSURE ABNORMAL
     Route: 065
     Dates: start: 2016
  31. VITAMIN B COMPLEX [Concomitant]
     Active Substance: CYANOCOBALAMIN\DEXPANTHENOL\NIACINAMIDE\PYRIDOXINE HYDROCHLORIDE\RIBOFLAVIN 5^-PHOSPHATE SODIUM\THIAMINE HYDROCHLORIDE\VITAMIN B COMPLEX
     Indication: ROUTINE HEALTH MAINTENANCE
     Route: 065
     Dates: start: 2014
  32. IPRATROPIUM [Concomitant]
     Active Substance: IPRATROPIUM
     Route: 065
  33. PENICILLIN [Concomitant]
     Active Substance: PENICILLIN
     Route: 065
  34. ONDANSETRON [Concomitant]
     Active Substance: ONDANSETRON
     Route: 065
  35. NEXIUM [Suspect]
     Active Substance: ESOMEPRAZOLE MAGNESIUM
     Indication: ULCER
     Route: 048
     Dates: start: 201606, end: 201701
  36. PANTOPRAZOLE [Suspect]
     Active Substance: PANTOPRAZOLE
     Indication: GASTROOESOPHAGEAL REFLUX DISEASE
     Route: 065
     Dates: start: 201412, end: 201503

REACTIONS (2)
  - Acute kidney injury [Not Recovered/Not Resolved]
  - Chronic kidney disease [Not Recovered/Not Resolved]

NARRATIVE: CASE EVENT DATE: 2015
